FAERS Safety Report 7932863-7 (Version None)
Quarter: 2011Q4

REPORT INFORMATION
  Report Type: 
  Country: None (occurrence: None)
  Receive Date: 20111122
  Receipt Date: 20111110
  Transmission Date: 20120403
  Serious: Yes (Death, Other)
  Sender: FDA-Public Use
  Company Number: JP-BAYER-200912849BYL

PATIENT
  Age: 82 Year
  Sex: Male
  Weight: 66 kg

DRUGS (13)
  1. NEXAVAR [Suspect]
     Dosage: 200 MG, BID
     Route: 048
     Dates: start: 20090821, end: 20090901
  2. NEXAVAR [Suspect]
     Dosage: DAILY DOSE 200 MG
     Route: 048
     Dates: start: 20090901, end: 20090917
  3. GLYCYRRHIZIC ACID [Concomitant]
     Dosage: FROM BEFORE ADMINISTRATION
     Route: 048
  4. ADALAT [Concomitant]
     Dosage: FROM BEFORE ADMINISTRATION
     Route: 048
  5. DOMPERIDONE [Concomitant]
     Dosage: FROM BEFORE ADMINISTRATION
     Route: 048
  6. FAMOTIDINE [Concomitant]
     Dosage: FROM BEFORE ADMINISTRATION
     Route: 048
  7. NEXAVAR [Suspect]
     Indication: HEPATIC NEOPLASM MALIGNANT
     Dosage: 400 MG, BID
     Route: 048
     Dates: start: 20090626, end: 20090807
  8. KETOPROFEN [Concomitant]
     Dosage: FROM BEFORE ADMINISTRATION
     Route: 061
  9. SHAKUYAKUKANZOUTOU [Concomitant]
     Dosage: FROM BEFORE ADMINISTRATION
     Route: 048
  10. LIVACT [Concomitant]
     Dosage: FROM BEFORE ADMINISTRATION
     Route: 048
  11. CALCIUM CARBONATE [Concomitant]
     Dosage: FROM BEFORE ADMINISTRATION
     Route: 048
  12. LASIX [Concomitant]
     Dosage: 20 MG (DAILY DOSE), , ORAL
     Route: 048
     Dates: start: 20090807
  13. ALDACTONE [Concomitant]
     Dosage: 25 MG (DAILY DOSE), , ORAL
     Route: 048
     Dates: start: 20090807

REACTIONS (5)
  - HEPATIC FUNCTION ABNORMAL [None]
  - HYPERAMMONAEMIA [None]
  - HEPATIC ENCEPHALOPATHY [None]
  - HEPATIC NEOPLASM MALIGNANT NON-RESECTABLE [None]
  - ASCITES [None]
